FAERS Safety Report 5311782-9 (Version None)
Quarter: 2007Q2

REPORT INFORMATION
  Report Type: 
  Country: None (occurrence: None)
  Receive Date: 20070430
  Receipt Date: 20060329
  Transmission Date: 20071010
  Serious: No
  Sender: FDA-Public Use
  Company Number: 2006UW04845

PATIENT
  Age: 44 Year
  Sex: Female
  Weight: 54.4 kg

DRUGS (4)
  1. NEXIUM [Suspect]
     Indication: GASTROOESOPHAGEAL REFLUX DISEASE
     Route: 048
     Dates: start: 20060201
  2. NEXIUM [Suspect]
     Route: 048
  3. NEXIUM [Suspect]
     Route: 048
  4. NEXIUM [Suspect]
     Route: 048

REACTIONS (4)
  - ANXIETY [None]
  - HOT FLUSH [None]
  - INSOMNIA [None]
  - WEIGHT DECREASED [None]
